FAERS Safety Report 19208814 (Version 2)
Quarter: 2021Q2

REPORT INFORMATION
  Report Type: Spontaneous
  Country: CN (occurrence: CN)
  Receive Date: 20210503
  Receipt Date: 20210506
  Transmission Date: 20210717
  Serious: Yes (Other)
  Sender: FDA-Public Use
  Company Number: CN-PFIZER INC-2021457196

PATIENT
  Age: 30 Year
  Sex: Male
  Weight: 60 kg

DRUGS (5)
  1. LEVOFLOXACIN. [Concomitant]
     Active Substance: LEVOFLOXACIN
  2. CELECOXIB. [Suspect]
     Active Substance: CELECOXIB
     Indication: INTERCOSTAL NEURALGIA
     Dosage: 1.000 DF, 2X/DAY
     Route: 048
     Dates: start: 20210421, end: 20210421
  3. HYDROTALCITE [Concomitant]
     Active Substance: HYDROTALCITE
  4. MOSAPRIDE [Concomitant]
     Active Substance: MOSAPRIDE
  5. MECOBALAMIN [Suspect]
     Active Substance: METHYLCOBALAMIN
     Indication: INTERCOSTAL NEURALGIA
     Dosage: 1.000 DF, 3X/DAY
     Route: 048
     Dates: start: 20210421, end: 20210421

REACTIONS (3)
  - Headache [Recovering/Resolving]
  - Skin burning sensation [Recovering/Resolving]
  - Hypoaesthesia [Recovering/Resolving]

NARRATIVE: CASE EVENT DATE: 20210421
